FAERS Safety Report 6555367-5 (Version None)
Quarter: 2010Q1

REPORT INFORMATION
  Report Type: 
  Country: None (occurrence: None)
  Receive Date: 20100128
  Receipt Date: 20090831
  Transmission Date: 20100710
  Serious: No
  Sender: FDA-Public Use
  Company Number: A0798945A

PATIENT
  Age: 66 Year
  Sex: Female
  Weight: 104.5 kg

DRUGS (3)
  1. WELLBUTRIN [Suspect]
     Route: 048
  2. ZYBAN [Suspect]
     Indication: DRUG USE FOR UNKNOWN INDICATION
     Dates: start: 20010101
  3. ZOLOFT [Concomitant]
     Dates: start: 20050101

REACTIONS (1)
  - WEIGHT INCREASED [None]
